FAERS Safety Report 6820789-1 (Version None)
Quarter: 2010Q3

REPORT INFORMATION
  Report Type: 
  Country: None (occurrence: None)
  Receive Date: 20100707
  Receipt Date: 20070529
  Transmission Date: 20110219
  Serious: No
  Sender: FDA-Public Use
  Company Number: US-PFIZER INC-2007046560

PATIENT
  Sex: Female
  Weight: 72.57 kg

DRUGS (5)
  1. ZOLOFT [Suspect]
     Indication: DEPRESSION
     Dates: start: 20060901, end: 20060901
  2. PREVACID [Concomitant]
  3. ESTRACE [Concomitant]
  4. FLEXERIL [Concomitant]
  5. VALIUM [Concomitant]

REACTIONS (7)
  - AGITATION [None]
  - DRY MOUTH [None]
  - DYSPNOEA [None]
  - HYPERHIDROSIS [None]
  - HYPOAESTHESIA ORAL [None]
  - NERVOUSNESS [None]
  - TONGUE DISCOLOURATION [None]
